FAERS Safety Report 6827591-5 (Version None)
Quarter: 2010Q3

REPORT INFORMATION
  Report Type: 
  Country: None (occurrence: None)
  Receive Date: 20100709
  Receipt Date: 20070118
  Transmission Date: 20110219
  Serious: No
  Sender: FDA-Public Use
  Company Number: US-PFIZER INC-2007006005

PATIENT
  Sex: Female
  Weight: 50.8 kg

DRUGS (4)
  1. CHANTIX [Suspect]
     Indication: SMOKING CESSATION THERAPY
     Dates: start: 20070101
  2. SUDAFED 12 HOUR [Suspect]
     Indication: COUGH
  3. COUGH AND COLD PREPARATIONS [Suspect]
  4. LEXAPRO [Concomitant]

REACTIONS (3)
  - HEADACHE [None]
  - NAUSEA [None]
  - NERVOUSNESS [None]
